FAERS Safety Report 13440854 (Version 5)
Quarter: 2017Q2

REPORT INFORMATION
  Report Type: Spontaneous
  Country: TW (occurrence: TW)
  Receive Date: 20170413
  Receipt Date: 20170424
  Transmission Date: 20170830
  Serious: Yes (Death, Hospitalization)
  Sender: FDA-Public Use
  Company Number: TW-ABBVIE-17P-153-1939842-00

PATIENT
  Age: 79 Year
  Sex: Female

DRUGS (4)
  1. CARVEDILOL. [Concomitant]
     Active Substance: CARVEDILOL
     Indication: PRODUCT USED FOR UNKNOWN INDICATION
  2. VIEKIRAX [Suspect]
     Active Substance: OMBITASVIR\PARITAPREVIR\RITONAVIR
     Indication: HEPATITIS C
     Route: 048
     Dates: start: 20170223, end: 20170316
  3. URSODEOXYCHOLIC ACID [Concomitant]
     Active Substance: URSODIOL
     Indication: PRODUCT USED FOR UNKNOWN INDICATION
  4. EXVIERA [Suspect]
     Active Substance: DASABUVIR
     Indication: HEPATITIS C
     Route: 048
     Dates: start: 20170223, end: 20170316

REACTIONS (11)
  - Hepatorenal syndrome [Unknown]
  - Acute respiratory failure [Unknown]
  - Splenomegaly [Unknown]
  - Ascites [Unknown]
  - Hepatitis acute [Fatal]
  - Hepatic cirrhosis [Unknown]
  - Hepatic failure [Fatal]
  - Coma [Fatal]
  - Hepatic encephalopathy [Unknown]
  - Blood bilirubin increased [Unknown]
  - Prothrombin time prolonged [Unknown]

NARRATIVE: CASE EVENT DATE: 201703
